FAERS Safety Report 6976612-8 (Version None)
Quarter: 2010Q3

REPORT INFORMATION
  Report Type: 
  Country: None (occurrence: None)
  Receive Date: 20100910
  Receipt Date: 20100831
  Transmission Date: 20110219
  Serious: Yes (Other)
  Sender: FDA-Public Use
  Company Number: US-PFIZER INC-2010069175

PATIENT
  Sex: Female
  Weight: 122 kg

DRUGS (5)
  1. LYRICA [Suspect]
     Indication: DEPRESSION
     Dosage: 75 MG, 2X/DAY
     Dates: start: 20100511, end: 20100521
  2. LYRICA [Suspect]
     Indication: FIBROMYALGIA
  3. CLONAZEPAM [Concomitant]
     Dosage: 1 MG, 3X/DAY
     Route: 048
     Dates: start: 20100201
  4. LORAZEPAM [Concomitant]
     Dosage: 1 MG, 3X/DAY AS NEEDED
     Route: 048
     Dates: start: 20100331
  5. NORCO [Concomitant]
     Dosage: 10/325MG EVERY 4-6 HOURS AS NEEDED
     Route: 048

REACTIONS (2)
  - HOMICIDAL IDEATION [None]
  - SUICIDAL IDEATION [None]
